FAERS Safety Report 5831559-5 (Version None)
Quarter: 2008Q3

REPORT INFORMATION
  Report Type: 
  Country: None (occurrence: None)
  Receive Date: 20080730
  Receipt Date: 20080711
  Transmission Date: 20090109
  Serious: Yes (Other)
  Sender: FDA-Public Use
  Company Number: 031412

PATIENT
  Sex: Female

DRUGS (4)
  1. MEDROXYPROGESTERONE [Suspect]
     Dosage: ORAL
     Route: 048
     Dates: start: 19960101, end: 19970101
  2. PREMARIN [Suspect]
     Dosage: ORAL
     Route: 048
     Dates: start: 19800101, end: 19970101
  3. PREMPRO [Suspect]
     Dosage: ORAL
     Route: 048
     Dates: start: 19800101, end: 19970101
  4. PROVERA [Suspect]
     Dosage: ORAL
     Route: 048
     Dates: start: 19800101, end: 19970101

REACTIONS (4)
  - BREAST CANCER METASTATIC [None]
  - METASTASES TO CHEST WALL [None]
  - METASTASES TO LIVER [None]
  - RECURRENT CANCER [None]
